FAERS Safety Report 6060011-X (Version None)
Quarter: 2009Q1

REPORT INFORMATION
  Report Type: 
  Country: None (occurrence: None)
  Receive Date: 20090130
  Receipt Date: 20090126
  Transmission Date: 20090719
  Serious: Yes (Hospitalization)
  Sender: FDA-Public Use
  Company Number: NO-AMGEN-UK274295

PATIENT
  Age: 30 Year
  Sex: Male

DRUGS (10)
  1. NEULASTA [Suspect]
     Indication: CHEMOTHERAPY
     Route: 058
     Dates: start: 20080403
  2. BLEOMYCIN SULFATE [Concomitant]
  3. ETOPOSIDE [Concomitant]
  4. DOXORUBICIN HYDROCHLORIDE [Concomitant]
  5. CYCLOPHOSPHAMIDE [Concomitant]
  6. VINCRISTINE [Concomitant]
  7. PROCARBAZINE [Concomitant]
  8. PREDNISONE [Concomitant]
  9. TRIMETHOPRIM + SULFAMETHOXAZOLE [Concomitant]
     Indication: PROPHYLAXIS
     Dates: start: 20080130
  10. PANTOPRAZOLE SODIUM [Concomitant]
     Route: 048

REACTIONS (4)
  - BONE PAIN [None]
  - FEBRILE NEUTROPENIA [None]
  - PYREXIA [None]
  - SYNCOPE [None]
